FAERS Safety Report 7562479-6 (Version None)
Quarter: 2011Q2

REPORT INFORMATION
  Report Type: 
  Country: None (occurrence: None)
  Receive Date: 20110621
  Receipt Date: 20110621
  Transmission Date: 20111010
  Serious: Yes (Other)
  Sender: FDA-Public Use
  Company Number: None

PATIENT
  Age: 40 Year
  Sex: Female
  Weight: 90.7194 kg

DRUGS (1)
  1. CYMBALTA [Suspect]
     Indication: BACK PAIN
     Dosage: 60MG 1X PO
     Route: 048
     Dates: start: 20101001, end: 20110619

REACTIONS (14)
  - NIGHTMARE [None]
  - INADEQUATE ANALGESIA [None]
  - NAUSEA [None]
  - VERTIGO [None]
  - HEART RATE INCREASED [None]
  - DRUG WITHDRAWAL SYNDROME [None]
  - DISTURBANCE IN ATTENTION [None]
  - PARAESTHESIA [None]
  - MEMORY IMPAIRMENT [None]
  - HYPERHIDROSIS [None]
  - HEADACHE [None]
  - BRAIN INJURY [None]
  - FEELING ABNORMAL [None]
  - UNEVALUABLE EVENT [None]
